FAERS Safety Report 13634071 (Version 1)
Quarter: 2017Q2

REPORT INFORMATION
  Report Type: Spontaneous
  Country: US (occurrence: US)
  Receive Date: 20170531
  Receipt Date: 20170531
  Transmission Date: 20170830
  Serious: No
  Sender: FDA-Public Use
  Company Number: US-ASTELLAS-1602256

PATIENT
  Age: 51 Year
  Sex: Male

DRUGS (10)
  1. EPA [Concomitant]
  2. FAMCICLOVIR. [Concomitant]
     Active Substance: FAMCICLOVIR
  3. BOSWELLIA SERRATA [Concomitant]
     Route: 065
  4. LEVETIRACETAM. [Concomitant]
     Active Substance: LEVETIRACETAM
  5. DOXYCYCLINE HYCLATE. [Concomitant]
     Active Substance: DOXYCYCLINE HYCLATE
  6. TARCEVA [Suspect]
     Active Substance: ERLOTINIB HYDROCHLORIDE
     Indication: LUNG NEOPLASM MALIGNANT
     Route: 048
     Dates: start: 20150514
  7. PANTOPRAZOLE SODIUM. [Concomitant]
     Active Substance: PANTOPRAZOLE SODIUM
  8. DEXAMETHASONE. [Concomitant]
     Active Substance: DEXAMETHASONE
  9. NOVOLOG [Concomitant]
     Active Substance: INSULIN ASPART
     Dosage: MIX 70/30 FLEXPEN
     Route: 065
  10. TEA [Concomitant]
     Active Substance: TEA LEAF

REACTIONS (1)
  - Rash [Unknown]

NARRATIVE: CASE EVENT DATE: 20150610
